FAERS Safety Report 9879455 (Version 1)
Quarter: 2014Q1

REPORT INFORMATION
  Report Type: Spontaneous
  Country: US (occurrence: US)
  Receive Date: 20140206
  Receipt Date: 20140206
  Transmission Date: 20141002
  Serious: Yes (Other)
  Sender: FDA-Public Use
  Company Number: CHPA2014US001646

PATIENT
  Age: 74 Year
  Sex: Female

DRUGS (4)
  1. EXCEDRIN UNKNOWN [Suspect]
     Indication: HEADACHE
     Dosage: 1 UNK, UNK
     Route: 048
  2. EXCEDRIN UNKNOWN [Suspect]
     Indication: KNEE ARTHROPLASTY
  3. EXCEDRIN UNKNOWN [Suspect]
     Indication: HIP ARTHROPLASTY
  4. EXCEDRIN UNKNOWN [Suspect]
     Indication: OFF LABEL USE

REACTIONS (3)
  - Device material issue [Not Recovered/Not Resolved]
  - Rash [Not Recovered/Not Resolved]
  - Underdose [Unknown]
